FAERS Safety Report 10244488 (Version 1)
Quarter: 2014Q1

REPORT INFORMATION
  Report Type: Spontaneous
  Country: US (occurrence: None)
  Receive Date: 20140306
  Receipt Date: 20140306
  Transmission Date: 20141002
  Serious: Yes (Other)
  Sender: FDA-Public Use
  Company Number: 163-21880-13023182

PATIENT
  Age: 61 Year
  Sex: Male

DRUGS (10)
  1. REVLIMID (LENALIDOMIDE) (CAPSULES) [Suspect]
     Indication: PLASMA CELL MYELOMA
     Route: 048
     Dates: start: 200605
  2. B COMPLEX 50 (BECOSYM FORTE) (UNKNOWN) [Concomitant]
  3. CALCIUM CARBONATE +D (LEKOVIT CA) UNKOWN) [Concomitant]
  4. DEXAMETHASONE (UNKNOWN) [Concomitant]
  5. DILAUDID (HYDROMORPHONE HYDROCHLORIDE) (UNKNOWN) [Concomitant]
  6. DILTIAZEM CD (DILTIAZEM HYDROCHLORIDE) (UNKNOWN) [Concomitant]
  7. LANTUS (INSULIN GLARGINE) (UNKNOWN) [Concomitant]
  8. LYRICA (PREGABALIN) (UNKNOWN) [Concomitant]
  9. OXYCODONE HCL (OXYCODONE HYDROCHLORIDE) (UNKNOWN) [Concomitant]
  10. MULTIVITAMINS WITH MINERALS (UNKNOWN) [Concomitant]

REACTIONS (2)
  - Plasma cell myeloma [None]
  - Plasma cell myeloma [None]
